FAERS Safety Report 5472204-0 (Version None)
Quarter: 2007Q3

REPORT INFORMATION
  Report Type: 
  Country: None (occurrence: None)
  Receive Date: 20070926
  Receipt Date: 20070912
  Transmission Date: 20080115
  Serious: Yes (Other)
  Sender: FDA-Public Use
  Company Number: 8026033

PATIENT
  Age: 58 Year
  Sex: Female

DRUGS (8)
  1. KEPPRA [Suspect]
     Indication: CONVULSION
     Dosage: 500 MG 2/D
     Dates: start: 20070101
  2. KEPPRA [Suspect]
     Indication: CONVULSION
     Dosage: 1500 MG /D
     Dates: start: 20070504, end: 20070505
  3. KEPPRA [Suspect]
     Indication: CONVULSION
     Dosage: 2500 MG /D
     Dates: start: 20070505, end: 20070506
  4. KEPPRA [Suspect]
     Indication: CONVULSION
     Dosage: 3000 MG /D
     Dates: start: 20070506
  5. DILANTIN [Concomitant]
  6. AUGMENTIN '125' [Concomitant]
  7. PENICILLIN [Concomitant]
  8. CLINDAMYCIN HCL [Concomitant]

REACTIONS (3)
  - ABDOMINAL PAIN UPPER [None]
  - IMMUNODEFICIENCY [None]
  - RASH ERYTHEMATOUS [None]
